FAERS Safety Report 11621448 (Version 2)
Quarter: 2015Q4

REPORT INFORMATION
  Report Type: Spontaneous
  Country: PH (occurrence: PH)
  Receive Date: 20151012
  Receipt Date: 20151015
  Transmission Date: 20160304
  Serious: Yes (Hospitalization)
  Sender: FDA-Public Use
  Company Number: PH-009507513-1510PHL004279

PATIENT
  Age: 64 Year
  Sex: Male

DRUGS (2)
  1. JANUVIA [Suspect]
     Active Substance: SITAGLIPTIN PHOSPHATE
     Indication: DIABETES MELLITUS
     Dosage: 1 TABLET PER DAY AFTER BREAKFAST
     Route: 048
     Dates: start: 2010
  2. SOLOSAMET [Concomitant]

REACTIONS (2)
  - Inflammation [Recovering/Resolving]
  - Blister [Unknown]

NARRATIVE: CASE EVENT DATE: 2015
